FAERS Safety Report 6800578-4 (Version None)
Quarter: 2010Q2

REPORT INFORMATION
  Report Type: 
  Country: None (occurrence: None)
  Receive Date: 20100625
  Receipt Date: 20100625
  Transmission Date: 20101027
  Serious: Yes (Hospitalization)
  Sender: FDA-Public Use
  Company Number: None

PATIENT
  Sex: Female
  Weight: 52.18 kg

DRUGS (2)
  1. CARBOPLATIN [Suspect]
     Dosage: 501 MG
  2. TAXOL [Suspect]
     Dosage: 1120 MG

REACTIONS (9)
  - ASTHENIA [None]
  - ATRIAL FIBRILLATION [None]
  - DECREASED APPETITE [None]
  - DYSPHAGIA [None]
  - HYPONATRAEMIA [None]
  - PNEUMOTHORAX [None]
  - RADIATION INJURY [None]
  - SKIN ULCER [None]
  - WEIGHT DECREASED [None]
